FAERS Safety Report 23644040 (Version 1)
Quarter: 2024Q1

REPORT INFORMATION
  Report Type: Spontaneous
  Country: NL (occurrence: NL)
  Receive Date: 20240318
  Receipt Date: 20240318
  Transmission Date: 20240410
  Serious: Yes (Hospitalization)
  Sender: FDA-Public Use
  Company Number: None

PATIENT
  Age: 82 Year
  Sex: Male
  Weight: 84 kg

DRUGS (3)
  1. DEXAMETHASONE [Suspect]
     Active Substance: DEXAMETHASONE
     Indication: Metastases to central nervous system
     Dosage: 1 X 1 PIECE PER DAY, TABLET 8 MG, BRAND NAME NOT SPECIFIED
     Route: 065
     Dates: start: 20230301
  2. PRAVASTATIN [Concomitant]
     Active Substance: PRAVASTATIN
     Indication: Product used for unknown indication
     Dosage: TABLET, 40 MG (MILLIGRAM),BRAND NAME NOT SPECIFIED, PRAVASTATINE
     Route: 065
  3. LISINOPRIL [Concomitant]
     Active Substance: LISINOPRIL
     Indication: Product used for unknown indication
     Dosage: TABLET, 5 MG (MILLIGRAM), BRAND NAME NOT SPECIFIED
     Route: 065

REACTIONS (1)
  - Mania [Recovered/Resolved]
